FAERS Safety Report 21459516 (Version 1)
Quarter: 2022Q4

REPORT INFORMATION
  Report Type: Spontaneous
  Country: US (occurrence: US)
  Receive Date: 20221014
  Receipt Date: 20221014
  Transmission Date: 20230113
  Serious: Yes (Other)
  Sender: FDA-Public Use
  Company Number: US-INTRA-CELLULAR THERAPIES, INC.-2022ICT01342

PATIENT
  Age: 43 Year
  Sex: Female

DRUGS (3)
  1. CAPLYTA [Suspect]
     Active Substance: LUMATEPERONE
     Indication: Bipolar II disorder
     Dosage: 42 MG, 1X/DAY
     Dates: start: 20220926, end: 20220926
  2. WELLBUTRIN [Concomitant]
     Active Substance: BUPROPION HYDROCHLORIDE
     Dosage: 150 UNK
  3. KLONOPIN [Concomitant]
     Active Substance: CLONAZEPAM
     Dosage: 1 MG

REACTIONS (15)
  - Hypotension [Recovering/Resolving]
  - Performance status decreased [Recovered/Resolved]
  - Feeling hot [Unknown]
  - Feeling cold [Unknown]
  - Insomnia [Recovering/Resolving]
  - Disturbance in attention [Unknown]
  - Sensory disturbance [Unknown]
  - Paraesthesia [Unknown]
  - Hyperhidrosis [Unknown]
  - Visual impairment [Unknown]
  - Drug hypersensitivity [Unknown]
  - Nausea [Recovering/Resolving]
  - Headache [Unknown]
  - Dizziness [Recovering/Resolving]
  - Orthostatic hypotension [Unknown]

NARRATIVE: CASE EVENT DATE: 20220901
